FAERS Safety Report 22635588 (Version 1)
Quarter: 2023Q2

REPORT INFORMATION
  Report Type: Spontaneous
  Country: FR (occurrence: FR)
  Receive Date: 20230623
  Receipt Date: 20230623
  Transmission Date: 20230722
  Serious: Yes (Death)
  Sender: FDA-Public Use
  Company Number: None

PATIENT
  Age: 64 Year
  Sex: Male
  Weight: 56 kg

DRUGS (3)
  1. ATEZOLIZUMAB [Suspect]
     Active Substance: ATEZOLIZUMAB
     Indication: Lung neoplasm malignant
     Dosage: MOST RECENT DOSE OF ATEZOLIZUMAB: /FEB/2023
     Route: 065
     Dates: start: 202211
  2. ETOPOSIDE [Suspect]
     Active Substance: ETOPOSIDE
     Indication: Pain
     Dosage: MOST RECENT DOSE OF ETOPOSIDE: /FEB/2023
     Route: 065
     Dates: start: 202211
  3. CARBOPLATIN [Suspect]
     Active Substance: CARBOPLATIN
     Indication: Pain
     Dosage: MOST RECENT DOSE OF CARBOPLATINE: /FEB/2023
     Route: 065
     Dates: start: 202211

REACTIONS (1)
  - Hepatitis fulminant [Fatal]

NARRATIVE: CASE EVENT DATE: 20230517
